FAERS Safety Report 12532211 (Version 1)
Quarter: 2016Q3

REPORT INFORMATION
  Report Type: Spontaneous
  Country: GB (occurrence: GB)
  Receive Date: 20160706
  Receipt Date: 20160706
  Transmission Date: 20161109
  Serious: Yes (Hospitalization)
  Sender: FDA-Public Use
  Company Number: GB-MYLANLABS-2016M1026769

PATIENT

DRUGS (12)
  1. BISOPROLOL [Concomitant]
     Active Substance: BISOPROLOL
     Dosage: MORNING.
  2. ESTRADIOL. [Concomitant]
     Active Substance: ESTRADIOL
     Dosage: MORNING
  3. AZATHIOPRINE. [Suspect]
     Active Substance: AZATHIOPRINE
     Dosage: 25 MG, UNK
     Dates: end: 20160525
  4. ACCRETE D3 [Concomitant]
     Dosage: 1 DF, BID
  5. EPADERM [Concomitant]
     Active Substance: MINERAL OIL\PETROLATUM\WAX, EMULSIFYING
  6. MESALAZINE [Concomitant]
     Active Substance: MESALAMINE
  7. PREDNISOLONE. [Concomitant]
     Active Substance: PREDNISOLONE
     Dosage: MORNING.
  8. CITALOPRAM [Concomitant]
     Active Substance: CITALOPRAM HYDROBROMIDE
     Dosage: MORNING
  9. DOMPERIDONE [Concomitant]
     Active Substance: DOMPERIDONE
  10. LANSOPRAZOLE. [Concomitant]
     Active Substance: LANSOPRAZOLE
  11. DESLORATADINE. [Concomitant]
     Active Substance: DESLORATADINE
  12. GABAPENTIN. [Concomitant]
     Active Substance: GABAPENTIN

REACTIONS (6)
  - White blood cell count decreased [Unknown]
  - Meningitis viral [Unknown]
  - Headache [Not Recovered/Not Resolved]
  - Spinal osteoarthritis [Unknown]
  - Neutrophil count decreased [Recovering/Resolving]
  - Photophobia [Recovered/Resolved]
